FAERS Safety Report 8856386 (Version 2)
Quarter: 2013Q1

REPORT INFORMATION
  Report Type: Spontaneous
  Country: FI (occurrence: None)
  Receive Date: 20121018
  Receipt Date: 20130204
  Transmission Date: 20140127
  Serious: Yes (Hospitalization)
  Sender: FDA-Public Use
  Company Number: 1443502

PATIENT
  Age: 80 Year
  Sex: Female
  Weight: 56 kg

DRUGS (4)
  1. OXALIPLATIN [Suspect]
     Indication: COLON CANCER
     Route: 041
     Dates: start: 20120924, end: 20120924
  2. VECTIBIX [Concomitant]
  3. DIUREX /00022001/ [Concomitant]
  4. TETRALYSAL /00052901/ [Concomitant]

REACTIONS (4)
  - Erythema [None]
  - Suffocation feeling [None]
  - Pain in extremity [None]
  - Dyspnoea [None]
